FAERS Safety Report 15367472 (Version 1)
Quarter: 2018Q3

REPORT INFORMATION
  Report Type: Spontaneous
  Country: RO (occurrence: RO)
  Receive Date: 20180910
  Receipt Date: 20180910
  Transmission Date: 20181010
  Serious: Yes (Hospitalization, Other)
  Sender: FDA-Public Use
  Company Number: RO-SA-2018SA243177

PATIENT
  Age: 33 Year
  Sex: Female

DRUGS (1)
  1. ENOXAPARIN SODIUM. [Suspect]
     Active Substance: ENOXAPARIN SODIUM
     Indication: HYPERCOAGULATION

REACTIONS (2)
  - Postpartum disorder [Recovering/Resolving]
  - Exposure during pregnancy [Unknown]
